FAERS Safety Report 9629993 (Version 2)
Quarter: 2014Q1

REPORT INFORMATION
  Report Type: Spontaneous
  Country: AT (occurrence: AT)
  Receive Date: 20131017
  Receipt Date: 20140215
  Transmission Date: 20141002
  Serious: Yes (Life-Threatening, Other)
  Sender: FDA-Public Use
  Company Number: AT-ASTRAZENECA-2013SE75766

PATIENT
  Age: 23 Year
  Sex: Male

DRUGS (40)
  1. SEROQUEL [Suspect]
     Route: 048
     Dates: start: 20130521, end: 20130522
  2. SEROQUEL [Suspect]
     Route: 048
     Dates: start: 20130523, end: 20130523
  3. SEROQUEL [Suspect]
     Route: 048
     Dates: start: 20130524, end: 20130615
  4. SEROQUEL [Suspect]
     Route: 048
     Dates: start: 20130616, end: 20130617
  5. SEROQUEL [Suspect]
     Route: 048
     Dates: start: 20130618, end: 20130625
  6. SEROQUEL [Suspect]
     Route: 048
     Dates: start: 20130626, end: 20130626
  7. SEROQUEL [Suspect]
     Route: 048
     Dates: start: 20130627
  8. CATAPRESAN [Suspect]
     Route: 048
     Dates: start: 20130621, end: 20130621
  9. CATAPRESAN [Suspect]
     Route: 048
     Dates: start: 20130622, end: 20130624
  10. CATAPRESAN [Suspect]
     Route: 048
     Dates: start: 20130625, end: 20130626
  11. CATAPRESAN [Suspect]
     Route: 048
     Dates: start: 20130627, end: 20130627
  12. CATAPRESAN [Suspect]
     Route: 048
     Dates: start: 20130628
  13. XEPLION [Suspect]
     Route: 030
     Dates: start: 20130627, end: 20130627
  14. XEPLION [Suspect]
     Dosage: 150 MG, EVERY 4 WEEKS
     Route: 030
  15. RISPERDAL [Concomitant]
     Route: 048
     Dates: start: 20130515, end: 20130520
  16. RISPERDAL [Concomitant]
     Route: 048
     Dates: start: 20130521, end: 20130627
  17. RISPERDAL [Concomitant]
     Route: 048
     Dates: start: 20130628, end: 20130629
  18. RISPERDAL [Concomitant]
     Dosage: RISPERDAL CONSTA: 50, DAILY
     Route: 030
     Dates: start: 20130527, end: 20130527
  19. RISPERDAL [Concomitant]
     Dosage: RISPERDAL CONSTA: 100, DAILY
     Route: 030
     Dates: start: 20130606, end: 20130606
  20. RISPERDAL [Concomitant]
     Dosage: RISPERDAL CONSTA: 75, DAILY
     Route: 030
     Dates: start: 20130610, end: 20130610
  21. RISPERDAL [Concomitant]
     Route: 048
     Dates: end: 20130514
  22. RISPERDAL [Concomitant]
     Route: 048
     Dates: start: 20130630
  23. TEMESTA [Concomitant]
     Route: 048
     Dates: start: 20130612, end: 20130612
  24. TEMESTA [Concomitant]
     Route: 048
     Dates: start: 20130613, end: 20130623
  25. TEMESTA [Concomitant]
     Route: 048
     Dates: start: 20130624, end: 20130624
  26. TEMESTA [Concomitant]
     Route: 048
     Dates: start: 20130625, end: 20130626
  27. TEMESTA [Concomitant]
     Route: 048
     Dates: start: 20130627
  28. NEXIUM [Concomitant]
     Dosage: 20, DAILY
     Route: 048
     Dates: start: 20130613, end: 20130624
  29. GEWACALM [Concomitant]
     Dosage: 10, DAILY
     Route: 042
     Dates: start: 20130615, end: 20130623
  30. DORMICUM [Concomitant]
     Dosage: PERFUSOR; 5-10 MG/H
     Dates: start: 20130520, end: 20130623
  31. CISORDUINOL [Concomitant]
     Route: 030
     Dates: start: 20130617, end: 20130617
  32. CISORDUINOL [Concomitant]
     Route: 030
     Dates: start: 20130620, end: 20130620
  33. CISORDUINOL [Concomitant]
     Route: 030
     Dates: start: 20130624, end: 20130624
  34. CISORDUINOL [Concomitant]
     Route: 030
     Dates: start: 20130627, end: 20130627
  35. CISORDUINOL [Concomitant]
     Dosage: CISORDINOL ACUTARD: 200 MG, DAILY
     Route: 030
     Dates: start: 20130515
  36. CISORDUINOL [Concomitant]
     Route: 030
     Dates: start: 20130630
  37. HALDOL [Concomitant]
  38. RIVOTRIL [Concomitant]
  39. DEPAKINE CR [Concomitant]
  40. NOZINAN [Concomitant]
     Dosage: WHEN NECESSARY

REACTIONS (9)
  - Pyrexia [Recovered/Resolved]
  - Shock [Unknown]
  - Urinary tract infection [Unknown]
  - Muscle tightness [Unknown]
  - Abdominal pain [Unknown]
  - Nausea [Unknown]
  - White blood cell count increased [Unknown]
  - Neutrophil count increased [Unknown]
  - C-reactive protein increased [Unknown]
